FAERS Safety Report 7704352-6 (Version None)
Quarter: 2011Q3

REPORT INFORMATION
  Report Type: 
  Country: None (occurrence: None)
  Receive Date: 20110823
  Receipt Date: 20110812
  Transmission Date: 20111222
  Serious: Yes (Life-Threatening)
  Sender: FDA-Public Use
  Company Number: JP-MERCK-1004USA03948

PATIENT
  Age: 61 Year
  Sex: Male

DRUGS (5)
  1. TEGRETOL [Suspect]
     Indication: ENCEPHALITIS
     Route: 048
     Dates: start: 20100108, end: 20100416
  2. CORTICOSTEROIDS (UNSPECIFIED) [Concomitant]
     Indication: ENCEPHALITIS
     Route: 065
  3. GABAPENTIN [Suspect]
     Indication: ENCEPHALITIS
     Route: 048
     Dates: start: 20100131, end: 20100416
  4. FOSAMAX [Suspect]
     Indication: OSTEOPOROSIS
     Route: 048
     Dates: start: 20100311, end: 20100415
  5. LAMICTAL [Suspect]
     Indication: ENCEPHALITIS
     Route: 048
     Dates: start: 20100311, end: 20100412

REACTIONS (1)
  - GRANULOCYTOPENIA [None]
